FAERS Safety Report 4457582-3 (Version None)
Quarter: 2004Q3

REPORT INFORMATION
  Report Type: 
  Country: None (occurrence: None)
  Receive Date: 20040902
  Receipt Date: 20040608
  Transmission Date: 20050211
  Serious: No
  Sender: FDA-Public Use
  Company Number: 200410494BWH

PATIENT
  Age: 74 Year
  Sex: Male

DRUGS (6)
  1. LEVITRA [Suspect]
     Indication: ERECTILE DYSFUNCTION
     Dosage: 20 MG, QW, ORAL
     Route: 048
     Dates: start: 20031201
  2. PROCARDIA XL [Concomitant]
  3. MULTI-VITAMIN [Concomitant]
  4. VIAGRA [Concomitant]
  5. FOLIC ACID [Concomitant]
  6. HYDROCHLOROTHIAZIDE [Concomitant]

REACTIONS (1)
  - THERAPEUTIC RESPONSE DELAYED [None]
